FAERS Safety Report 21166093 (Version 2)
Quarter: 2022Q3

REPORT INFORMATION
  Report Type: Spontaneous
  Country: US (occurrence: US)
  Receive Date: 20220803
  Receipt Date: 20220921
  Transmission Date: 20221026
  Serious: No
  Sender: FDA-Public Use
  Company Number: US-PFIZER INC-202201021585

PATIENT
  Age: 44 Year
  Sex: Female
  Weight: 87.4 kg

DRUGS (8)
  1. PAXLOVID [Suspect]
     Active Substance: NIRMATRELVIR\RITONAVIR
     Indication: COVID-19 treatment
     Dosage: UNK
     Dates: start: 20220714, end: 20220719
  2. ALVESCO [Concomitant]
     Active Substance: CICLESONIDE
     Dosage: 80 UG
     Dates: start: 20220628
  3. EQUATE ALLERGY RELIEF [FLUTICASONE PROPIONATE] [Concomitant]
     Dosage: 50 UG
     Dates: start: 20220101
  4. FLUCONAZOLE [Concomitant]
     Active Substance: FLUCONAZOLE
     Dosage: 200 MG
     Dates: start: 20220706, end: 20220727
  5. MINERALS\VITAMINS [Concomitant]
     Active Substance: MINERALS\VITAMINS
     Dosage: UNK
     Dates: start: 20220101
  6. BACTRIM [Concomitant]
     Active Substance: SULFAMETHOXAZOLE\TRIMETHOPRIM
     Indication: Ear infection
     Dosage: UNK
     Dates: start: 20220719, end: 20220729
  7. OMEGA 3 [SALMON OIL] [Concomitant]
     Dosage: 2000 UG
     Dates: start: 20220601
  8. EQUATE ALLERGY RELIEF [LORATADINE] [Concomitant]
     Dosage: UNK
     Dates: start: 20220718

REACTIONS (7)
  - COVID-19 [Recovering/Resolving]
  - Disease recurrence [Recovering/Resolving]
  - Fatigue [Recovering/Resolving]
  - Erythema [Recovering/Resolving]
  - Pyrexia [Recovering/Resolving]
  - Sinusitis [Recovering/Resolving]
  - Ear infection [Recovering/Resolving]

NARRATIVE: CASE EVENT DATE: 20220719
